FAERS Safety Report 9381099 (Version 1)
Quarter: 2013Q3

REPORT INFORMATION
  Report Type: Spontaneous
  Country: BR (occurrence: BR)
  Receive Date: 20130703
  Receipt Date: 20130703
  Transmission Date: 20140515
  Serious: Yes (Other)
  Sender: FDA-Public Use
  Company Number: BR-BIOGENIDEC-2013BI059839

PATIENT
  Age: 23 Year
  Sex: Female

DRUGS (3)
  1. AVONEX [Suspect]
     Indication: MULTIPLE SCLEROSIS
     Route: 030
     Dates: start: 20120613, end: 201211
  2. PONDERA [Concomitant]
     Indication: ANXIETY
  3. PONDERA [Concomitant]
     Indication: OBSESSIVE-COMPULSIVE DISORDER

REACTIONS (3)
  - Drug-induced liver injury [Not Recovered/Not Resolved]
  - Obsessive-compulsive disorder [Recovered/Resolved]
  - Anxiety [Recovered/Resolved]
